FAERS Safety Report 4532262-4 (Version None)
Quarter: 2004Q4

REPORT INFORMATION
  Report Type: 
  Country: None (occurrence: None)
  Receive Date: 20041220
  Receipt Date: 20040923
  Transmission Date: 20050328
  Serious: Yes (Other)
  Sender: FDA-Public Use
  Company Number: FR-ABBOTT-04P-056-0274774-00

PATIENT
  Sex: Female
  Weight: 63 kg

DRUGS (2)
  1. ZECLAR [Suspect]
     Indication: DRUG USE FOR UNKNOWN INDICATION
     Route: 048
     Dates: start: 19910101, end: 19910101
  2. ZECLAR [Suspect]
     Route: 048
     Dates: start: 20000101, end: 20000101

REACTIONS (2)
  - ANGIONEUROTIC OEDEMA [None]
  - REACTION TO DRUG EXCIPIENT [None]
